FAERS Safety Report 7152974-6 (Version None)
Quarter: 2010Q4

REPORT INFORMATION
  Report Type: 
  Country: None (occurrence: None)
  Receive Date: 20101213
  Receipt Date: 20101203
  Transmission Date: 20110411
  Serious: Yes (Hospitalization)
  Sender: FDA-Public Use
  Company Number: US-SANOFI-AVENTIS-2010SA073824

PATIENT
  Age: 52 Year
  Sex: Male

DRUGS (2)
  1. JEVTANA KIT [Suspect]
     Indication: PROSTATE CANCER
     Route: 065
     Dates: start: 20101104, end: 20101104
  2. NEULASTA [Concomitant]
     Dates: start: 20101105

REACTIONS (1)
  - LUNG INFILTRATION [None]
